FAERS Safety Report 7376955-2 (Version None)
Quarter: 2011Q1

REPORT INFORMATION
  Report Type: 
  Country: None (occurrence: None)
  Receive Date: 20110328
  Receipt Date: 20110316
  Transmission Date: 20110831
  Serious: Yes (Hospitalization)
  Sender: FDA-Public Use
  Company Number: US-BIOGENIDEC-2011BI010310

PATIENT
  Age: 50 Year
  Sex: Female
  Weight: 55 kg

DRUGS (20)
  1. TYSABRI [Suspect]
     Indication: CROHN'S DISEASE
     Route: 042
     Dates: start: 20080827, end: 20110222
  2. VITAMIN D [Concomitant]
  3. CALCIUM [Concomitant]
  4. KLONOPIN [Concomitant]
     Indication: ANXIETY
  5. NUCYNTA [Concomitant]
     Indication: PAIN
  6. NORCO [Concomitant]
     Indication: PAIN
  7. ATIVAN [Concomitant]
     Indication: DEPRESSION
  8. LEXAPRO [Concomitant]
     Indication: ANXIETY
  9. PROVIGIL [Concomitant]
     Indication: ANXIETY
  10. PENTASA [Concomitant]
     Indication: CROHN'S DISEASE
  11. AMITRIPTYLINE HCL [Concomitant]
     Indication: PAIN
  12. NEXIUM [Concomitant]
     Indication: CROHN'S DISEASE
  13. KLONOPIN [Concomitant]
     Indication: DEPRESSION
  14. ATIVAN [Concomitant]
     Indication: ANXIETY
  15. LEXAPRO [Concomitant]
     Indication: DEPRESSION
  16. POTASSIUM (NOS) [Concomitant]
  17. CHANTIX [Concomitant]
     Indication: NICOTINE DEPENDENCE
     Route: 048
  18. PROVIGIL [Concomitant]
     Indication: DEPRESSION
  19. ZANAFLEX [Concomitant]
  20. ACETAMINOPHEN [Concomitant]
     Indication: PAIN

REACTIONS (9)
  - HEPATIC ENZYME INCREASED [None]
  - PNEUMONIA [None]
  - HERPES SIMPLEX [None]
  - SPLENOMEGALY [None]
  - ASCITES [None]
  - CYTOMEGALOVIRUS COLITIS [None]
  - CROHN'S DISEASE [None]
  - HYPOVOLAEMIA [None]
  - CLOSTRIDIAL INFECTION [None]
